FAERS Safety Report 5422090-X (Version None)
Quarter: 2007Q3

REPORT INFORMATION
  Report Type: 
  Country: None (occurrence: None)
  Receive Date: 20070822
  Receipt Date: 20070817
  Transmission Date: 20080115
  Serious: Yes (Death)
  Sender: FDA-Public Use
  Company Number: NSADSS2002037625

PATIENT
  Age: 57 Year
  Sex: Male

DRUGS (9)
  1. REOPRO [Suspect]
     Indication: ACUTE MYOCARDIAL INFARCTION
     Route: 041
  2. REOPRO [Suspect]
     Route: 040
  3. HEPARIN [Concomitant]
  4. ACTIVASE [Concomitant]
  5. STREPTOKINASE [Concomitant]
  6. ASPIRIN [Concomitant]
  7. DIAMORPHINE [Concomitant]
  8. ATENOLOL [Concomitant]
     Indication: HYPERTENSION
  9. NITRATES [Concomitant]

REACTIONS (4)
  - CARDIAC ARREST [None]
  - MYOCARDIAL INFARCTION [None]
  - MYOCARDIAL RUPTURE [None]
  - PERICARDIAL HAEMORRHAGE [None]
